FAERS Safety Report 22601994 (Version 1)
Quarter: 2023Q2

REPORT INFORMATION
  Report Type: Spontaneous
  Country: US (occurrence: None)
  Receive Date: 20230614
  Receipt Date: 20230614
  Transmission Date: 20230721
  Serious: Yes (Other)
  Sender: FDA-Public Use
  Company Number: None

PATIENT
  Age: 61 Year
  Sex: Male

DRUGS (1)
  1. ABIRATERONE [Suspect]
     Active Substance: ABIRATERONE
     Dosage: FREQUENCY : DAILY;?
     Route: 048

REACTIONS (6)
  - Arthralgia [None]
  - Peripheral swelling [None]
  - Cough [None]
  - Cystitis [None]
  - Myocardial infarction [None]
  - Weight decreased [None]

NARRATIVE: CASE EVENT DATE: 20230614
